FAERS Safety Report 19467078 (Version 4)
Quarter: 2021Q3

REPORT INFORMATION
  Report Type: Spontaneous
  Country: AR (occurrence: AR)
  Receive Date: 20210628
  Receipt Date: 20210712
  Transmission Date: 20211014
  Serious: Yes (Disabling, Other)
  Sender: FDA-Public Use
  Company Number: AR-AMGEN-ARGSP2021097808

PATIENT
  Age: 62 Year
  Sex: Female

DRUGS (1)
  1. ENBREL [Suspect]
     Active Substance: ETANERCEPT
     Indication: RHEUMATOID ARTHRITIS
     Dosage: 50 MG, WEEKLY
     Route: 065
     Dates: start: 20191220

REACTIONS (9)
  - Therapeutic product effect decreased [Unknown]
  - Pain in extremity [Unknown]
  - Peripheral coldness [Unknown]
  - Hypoaesthesia [Not Recovered/Not Resolved]
  - Gait inability [Unknown]
  - Foot deformity [Not Recovered/Not Resolved]
  - Spinal disorder [Not Recovered/Not Resolved]
  - Groin pain [Unknown]
  - Coccydynia [Unknown]

NARRATIVE: CASE EVENT DATE: 20210617
